FAERS Safety Report 20326582 (Version 2)
Quarter: 2022Q1

REPORT INFORMATION
  Report Type: Report from Study
  Country: BR (occurrence: BR)
  Receive Date: 20220112
  Receipt Date: 20220124
  Transmission Date: 20220423
  Serious: Yes (Hospitalization, Other)
  Sender: FDA-Public Use
  Company Number: BR-SA-SAC20220110000708

PATIENT
  Age: 60 Year
  Sex: Male
  Weight: 74 kg

DRUGS (4)
  1. DUPILUMAB [Suspect]
     Active Substance: DUPILUMAB
     Indication: Asthma
     Dosage: 300 MG, QOW
     Route: 058
     Dates: start: 20201106
  2. SERETIDE [Concomitant]
     Active Substance: FLUTICASONE PROPIONATE\SALMETEROL XINAFOATE
     Dosage: UNK UNK, QD
  3. MONTELUKAST SODIUM [Concomitant]
     Active Substance: MONTELUKAST SODIUM
     Indication: Asthma
     Dosage: UNK
  4. RIZI [Concomitant]
     Indication: Asthma
     Dosage: UNK

REACTIONS (12)
  - Ear infection [Recovering/Resolving]
  - Myringotomy [Recovering/Resolving]
  - Loss of consciousness [Recovering/Resolving]
  - Asthma [Unknown]
  - Malaise [Recovering/Resolving]
  - Mastoid disorder [Unknown]
  - Eyelid disorder [Unknown]
  - C-reactive protein increased [Unknown]
  - Quality of life decreased [Unknown]
  - Fatigue [Unknown]
  - Ear pain [Unknown]
  - Product use issue [Unknown]

NARRATIVE: CASE EVENT DATE: 20201106
